FAERS Safety Report 8183537-1 (Version None)
Quarter: 2012Q1

REPORT INFORMATION
  Report Type: 
  Country: None (occurrence: None)
  Receive Date: 20120305
  Receipt Date: 20120222
  Transmission Date: 20120608
  Serious: Yes (Death)
  Sender: FDA-Public Use
  Company Number: US-ELI_LILLY_AND_COMPANY-US201201000900

PATIENT
  Sex: Female

DRUGS (3)
  1. MOBIC [Concomitant]
  2. FORTEO [Suspect]
     Indication: OSTEOPOROSIS
     Dosage: 20 UG, QD
     Route: 065
     Dates: start: 20111130
  3. FORTEO [Suspect]
     Dosage: 20 UG, QD
     Route: 065

REACTIONS (7)
  - ARTHRITIS [None]
  - URINE COLOUR ABNORMAL [None]
  - NEUROPATHY PERIPHERAL [None]
  - FATIGUE [None]
  - MALAISE [None]
  - DEATH [None]
  - PAIN [None]
